FAERS Safety Report 4783202-4 (Version None)
Quarter: 2005Q3

REPORT INFORMATION
  Report Type: 
  Country: None (occurrence: None)
  Receive Date: 20050929
  Receipt Date: 20050926
  Transmission Date: 20060218
  Serious: Yes (Hospitalization)
  Sender: FDA-Public Use
  Company Number: FR-GLAXOSMITHKLINE-B0395221A

PATIENT
  Age: 57 Year
  Sex: Male

DRUGS (8)
  1. CLAMOXYL [Suspect]
     Indication: TOOTHACHE
     Dosage: 2G PER DAY
     Route: 048
     Dates: start: 20050710, end: 20050723
  2. FLUCONAZOLE [Suspect]
     Indication: ORAL FUNGAL INFECTION
     Route: 048
     Dates: start: 20050718, end: 20050723
  3. PARACETAMOL [Suspect]
     Dosage: 1G PER DAY
     Route: 048
  4. AMLOR [Concomitant]
     Dosage: 5MG PER DAY
     Route: 048
  5. PROGRAF [Concomitant]
     Dosage: 3.5MG PER DAY
     Route: 048
  6. EUPANTOL [Concomitant]
     Dosage: 20MG PER DAY
     Route: 048
  7. SELENIUM SULFIDE [Concomitant]
     Dosage: 1UNIT PER DAY
     Route: 065
  8. IMODIUM [Concomitant]
     Route: 065

REACTIONS (11)
  - ALANINE AMINOTRANSFERASE INCREASED [None]
  - ASPARTATE AMINOTRANSFERASE INCREASED [None]
  - BLOOD PHOSPHORUS INCREASED [None]
  - CHOLESTASIS [None]
  - DIARRHOEA [None]
  - GAMMA-GLUTAMYLTRANSFERASE INCREASED [None]
  - HEPATITIS [None]
  - IMMUNOSUPPRESSANT DRUG LEVEL INCREASED [None]
  - ORAL FUNGAL INFECTION [None]
  - SPLENOMEGALY [None]
  - THROMBOCYTOPENIA [None]
